FAERS Safety Report 10742615 (Version 1)
Quarter: 2015Q1

REPORT INFORMATION
  Report Type: Spontaneous
  Country: US (occurrence: None)
  Receive Date: 20150123
  Receipt Date: 20150123
  Transmission Date: 20150721
  Serious: No
  Sender: FDA-Public Use
  Company Number: None

PATIENT
  Age: 71 Year
  Sex: Female
  Weight: 77.57 kg

DRUGS (9)
  1. ANTROVASTIN [Concomitant]
  2. DOXOSGIAN [Concomitant]
  3. VITAMIN D [Concomitant]
     Active Substance: CHOLECALCIFEROL
  4. HCTZ [Concomitant]
     Active Substance: HYDROCHLOROTHIAZIDE
  5. MULTI VIT [Concomitant]
  6. VESICARE [Suspect]
     Active Substance: SOLIFENACIN SUCCINATE
     Indication: BLADDER DISORDER
     Dosage: 1 TABLET PER DAY
     Route: 048
     Dates: start: 20140620, end: 20140915
  7. NODOLSE [Concomitant]
  8. NEXIUM [Concomitant]
     Active Substance: ESOMEPRAZOLE MAGNESIUM
  9. VIT C W/D [Concomitant]

REACTIONS (7)
  - Nausea [None]
  - Dry mouth [None]
  - Swelling face [None]
  - Fatigue [None]
  - Oesophageal pain [None]
  - Burning sensation [None]
  - Chest discomfort [None]

NARRATIVE: CASE EVENT DATE: 201406
